FAERS Safety Report 6046576-2 (Version None)
Quarter: 2009Q1

REPORT INFORMATION
  Report Type: 
  Country: None (occurrence: None)
  Receive Date: 20090122
  Receipt Date: 20090113
  Transmission Date: 20090719
  Serious: Yes (Other)
  Sender: FDA-Public Use
  Company Number: PHHY2008ZA28780

PATIENT
  Age: 60 Year
  Sex: Female

DRUGS (5)
  1. ACLASTA [Suspect]
     Dosage: 5 MG/100 ML
  2. COVERSYL [Concomitant]
     Indication: HYPERTENSION
     Dosage: 1 TABLET IN THE MORNING
  3. CELEBREX [Concomitant]
     Indication: ARTHRITIS
     Dosage: 1 TABLET AT NIGHT
  4. METHOTREXATE [Concomitant]
     Dosage: ONCE A WEEK
  5. CALCIUM [Concomitant]

REACTIONS (4)
  - ABASIA [None]
  - ARTHRITIS [None]
  - HYPERTENSION [None]
  - PAIN [None]
